FAERS Safety Report 5942417-X (Version None)
Quarter: 2008Q4

REPORT INFORMATION
  Report Type: 
  Country: None (occurrence: None)
  Receive Date: 20081105
  Receipt Date: 20081024
  Transmission Date: 20090506
  Serious: Yes (Other)
  Sender: FDA-Public Use
  Company Number: US-PFIZER INC-2008090165

PATIENT
  Sex: Male

DRUGS (8)
  1. NEURONTIN [Suspect]
     Indication: DEPRESSION
     Dates: start: 20060101, end: 20070101
  2. NEURONTIN [Suspect]
     Indication: NEUROPATHY PERIPHERAL
  3. NEURONTIN [Suspect]
     Indication: PAIN
  4. ANALGESICS [Concomitant]
  5. ANTIHYPERTENSIVES [Concomitant]
     Indication: HYPERTENSION
  6. RENAGEL [Concomitant]
  7. SOFTENERS, EMOLLIENTS [Concomitant]
  8. VITAMINS [Concomitant]

REACTIONS (3)
  - ARTERIOSCLEROSIS [None]
  - MUSCULAR WEAKNESS [None]
  - TREMOR [None]
